FAERS Safety Report 7265291-0 (Version None)
Quarter: 2011Q1

REPORT INFORMATION
  Report Type: 
  Country: None (occurrence: None)
  Receive Date: 20110131
  Receipt Date: 20110125
  Transmission Date: 20110831
  Serious: Yes (Other)
  Sender: FDA-Public Use
  Company Number: US-PFIZER INC-2011003037

PATIENT
  Sex: Female

DRUGS (1)
  1. XALATAN [Suspect]
     Indication: INTRAOCULAR PRESSURE INCREASED
     Dosage: UNK
     Dates: start: 19990401

REACTIONS (4)
  - EYE OPERATION [None]
  - TRABECULOPLASTY [None]
  - INTRAOCULAR PRESSURE INCREASED [None]
  - BLINDNESS [None]
